FAERS Safety Report 4692134-1 (Version None)
Quarter: 2005Q2

REPORT INFORMATION
  Report Type: 
  Country: None (occurrence: None)
  Receive Date: 20050614
  Receipt Date: 20050606
  Transmission Date: 20051028
  Serious: Yes (Other)
  Sender: FDA-Public Use
  Company Number: 2005085574

PATIENT
  Age: 40 Year
  Sex: Female
  Weight: 48.0813 kg

DRUGS (2)
  1. ZOLOFT [Suspect]
     Dates: start: 20050601
  2. UNISOM [Suspect]
     Indication: INSOMNIA
     Dosage: 1 IN 1 TOTAL
     Dates: start: 20050603, end: 20050603

REACTIONS (4)
  - DYSARTHRIA [None]
  - IMPAIRED DRIVING ABILITY [None]
  - PANIC ATTACK [None]
  - READING DISORDER [None]
